FAERS Safety Report 23066360 (Version 1)
Quarter: 2023Q4

REPORT INFORMATION
  Report Type: Spontaneous
  Country: US (occurrence: US)
  Receive Date: 20231015
  Receipt Date: 20231015
  Transmission Date: 20240109
  Serious: Yes (Death)
  Sender: FDA-Public Use
  Company Number: US-TEVA-2023-US-2935860

PATIENT
  Sex: Male

DRUGS (1)
  1. ESCITALOPRAM OXALATE [Suspect]
     Active Substance: ESCITALOPRAM OXALATE
     Indication: Stress at work
     Route: 065

REACTIONS (5)
  - Completed suicide [Fatal]
  - Personality change [Unknown]
  - Cognitive disorder [Unknown]
  - Memory impairment [Unknown]
  - Product prescribing issue [Unknown]
